FAERS Safety Report 9838661 (Version 1)
Quarter: 2014Q1

REPORT INFORMATION
  Report Type: Spontaneous
  Country: IT (occurrence: IT)
  Receive Date: 20140123
  Receipt Date: 20140123
  Transmission Date: 20141002
  Serious: Yes (Other)
  Sender: FDA-Public Use
  Company Number: IT-TEVA-457839ISR

PATIENT
  Age: 53 Year
  Sex: Male

DRUGS (4)
  1. OXALIPLATIN [Suspect]
     Indication: PANCREATIC CARCINOMA
     Dosage: 120 MG CYCLICAL
     Route: 042
     Dates: start: 20130729, end: 20131230
  2. IRINOTECAN [Suspect]
     Indication: PANCREATIC CARCINOMA
     Dosage: 250 MG CYCLICAL
     Route: 042
     Dates: start: 20130729, end: 20131230
  3. FLUOROURACIL [Suspect]
     Indication: PANCREATIC CARCINOMA
     Dosage: 3500 MG CYCLICAL
     Route: 041
     Dates: start: 20130729, end: 20131230
  4. LEDERFOLIN - 175 MG POLVERE PER SOLUZIONE PER INFUSIONE [Concomitant]
     Indication: PRODUCT USED FOR UNKNOWN INDICATION
     Dosage: 316 MG
     Route: 042
     Dates: start: 20130729, end: 20131230

REACTIONS (1)
  - Paraesthesia [Not Recovered/Not Resolved]
